FAERS Safety Report 8322729-5 (Version None)
Quarter: 2012Q2

REPORT INFORMATION
  Report Type: 
  Country: None (occurrence: None)
  Receive Date: 20120430
  Receipt Date: 20120424
  Transmission Date: 20120825
  Serious: Yes (Hospitalization)
  Sender: FDA-Public Use
  Company Number: AR-BRISTOL-MYERS SQUIBB COMPANY-16474041

PATIENT
  Age: 64 Year
  Sex: Male

DRUGS (8)
  1. PLACEBO [Suspect]
     Indication: TYPE 2 DIABETES MELLITUS
     Route: 048
     Dates: start: 20101101
  2. CARVEDILOL [Concomitant]
     Indication: MYOCARDIAL ISCHAEMIA
     Route: 048
  3. METFORMIN HCL [Suspect]
     Indication: TYPE 2 DIABETES MELLITUS
     Route: 048
  4. GLYBURIDE [Suspect]
     Indication: TYPE 2 DIABETES MELLITUS
     Route: 048
  5. LANTUS [Suspect]
     Indication: TYPE 2 DIABETES MELLITUS
     Dosage: INTERRUPTED ON 31OUT2010 RESTARTED ON 01NOV2010 21 MG
     Dates: start: 20100415
  6. ASPIRIN [Concomitant]
     Indication: MYOCARDIAL ISCHAEMIA
  7. ATORVASTATIN CALCIUM [Concomitant]
     Indication: DYSLIPIDAEMIA
     Route: 048
  8. ENALAPRIL MALEATE [Concomitant]
     Indication: HYPERTENSION
     Route: 048

REACTIONS (1)
  - HYPOGLYCAEMIC SEIZURE [None]
